FAERS Safety Report 6628017-7 (Version None)
Quarter: 2010Q1

REPORT INFORMATION
  Report Type: 
  Country: None (occurrence: None)
  Receive Date: 20100311
  Receipt Date: 20090611
  Transmission Date: 20100710
  Serious: No
  Sender: FDA-Public Use
  Company Number: A0790372A

PATIENT
  Age: 57 Year
  Sex: Male

DRUGS (1)
  1. NICORETTE WHITE ICE OTC 2MG [Suspect]
     Dates: start: 20090610, end: 20090611

REACTIONS (1)
  - DRUG INEFFECTIVE [None]
